FAERS Safety Report 7065031-4 (Version None)
Quarter: 2010Q4

REPORT INFORMATION
  Report Type: 
  Country: None (occurrence: None)
  Receive Date: 20101027
  Receipt Date: 20101015
  Transmission Date: 20110411
  Serious: Yes (Hospitalization)
  Sender: FDA-Public Use
  Company Number: PHHY2010DE70440

PATIENT
  Sex: Female
  Weight: 105 kg

DRUGS (1)
  1. CGS 20267 T30748+ [Suspect]
     Indication: BREAST CANCER
     Dosage: 2.5 MG, QD
     Route: 048
     Dates: start: 20081016, end: 20090701

REACTIONS (2)
  - ARTHRALGIA [None]
  - SALPINGO-OOPHORECTOMY [None]
